FAERS Safety Report 5122948-5 (Version None)
Quarter: 2006Q4

REPORT INFORMATION
  Report Type: 
  Country: None (occurrence: None)
  Receive Date: 20061005
  Receipt Date: 20061002
  Transmission Date: 20070319
  Serious: Yes (Other)
  Sender: FDA-Public Use
  Company Number: 008769

PATIENT
  Sex: Female

DRUGS (7)
  1. MEDROXYPROGESTERONE ACETATE [Suspect]
     Dosage: ORAL
     Route: 048
     Dates: start: 19900101, end: 20021001
  2. PREMARIN [Suspect]
     Dosage: ORAL
     Route: 048
     Dates: start: 19010101, end: 20021001
  3. ESTRACE [Suspect]
     Dosage: ORAL
     Route: 048
     Dates: start: 19010101, end: 20021001
  4. PROMETRIUM [Suspect]
     Dosage: ORAL
     Route: 048
     Dates: start: 19900101, end: 20021001
  5. PROVERA [Suspect]
     Dosage: ORAL
     Route: 048
     Dates: start: 19900101, end: 20021001
  6. MENEST [Suspect]
     Dosage: ORAL
     Route: 048
     Dates: start: 19010101, end: 20021001
  7. ESTRATEST [Suspect]
     Dosage: ORAL
     Route: 048
     Dates: start: 19900101, end: 20021001

REACTIONS (1)
  - BREAST CANCER FEMALE [None]
